FAERS Safety Report 11173594 (Version 6)
Quarter: 2015Q4

REPORT INFORMATION
  Report Type: Report from Study
  Country: US (occurrence: US)
  Receive Date: 20150609
  Receipt Date: 20151109
  Transmission Date: 20160304
  Serious: Yes (Other)
  Sender: FDA-Public Use
  Company Number: US-AMGEN-USASP2015055605

PATIENT
  Age: 68 Year
  Sex: Female

DRUGS (1)
  1. ENBREL [Suspect]
     Active Substance: ETANERCEPT
     Indication: RHEUMATOID ARTHRITIS
     Dosage: 50 MG, QWK
     Route: 058
     Dates: start: 20121101, end: 2015

REACTIONS (15)
  - Hip fracture [Not Recovered/Not Resolved]
  - Hand deformity [Unknown]
  - Elbow deformity [Unknown]
  - Ear infection [Recovered/Resolved]
  - Psoriasis [Unknown]
  - Nodule [Unknown]
  - Skin mass [Unknown]
  - Pneumonia [Unknown]
  - Incorrect product storage [Unknown]
  - Urinary tract infection [Not Recovered/Not Resolved]
  - Malaise [Unknown]
  - White blood cell count decreased [Unknown]
  - Localised infection [Unknown]
  - Knee deformity [Unknown]
  - Night sweats [Unknown]

NARRATIVE: CASE EVENT DATE: 201412
